FAERS Safety Report 6722799-1 (Version None)
Quarter: 2010Q2

REPORT INFORMATION
  Report Type: 
  Country: None (occurrence: None)
  Receive Date: 20100512
  Receipt Date: 20100512
  Transmission Date: 20101027
  Serious: No
  Sender: FDA-Public Use
  Company Number: None

PATIENT
  Sex: Male
  Weight: 77.3 kg

DRUGS (3)
  1. LYRICA [Suspect]
     Indication: OSTEOARTHRITIS
     Dosage: 50MG TWICE DAILY ORAL
     Route: 048
     Dates: start: 20100510, end: 20100511
  2. LYRICA [Suspect]
     Indication: SPINAL COLUMN STENOSIS
     Dosage: 50MG TWICE DAILY ORAL
     Route: 048
     Dates: start: 20100510, end: 20100511
  3. LYRICA [Suspect]
     Indication: SPONDYLOARTHROPATHY
     Dosage: 50MG TWICE DAILY ORAL
     Route: 048
     Dates: start: 20100510, end: 20100511

REACTIONS (2)
  - DIARRHOEA [None]
  - NAUSEA [None]
